FAERS Safety Report 4385411-5 (Version None)
Quarter: 2004Q2

REPORT INFORMATION
  Report Type: 
  Country: None (occurrence: None)
  Receive Date: 20040622
  Receipt Date: 20040609
  Transmission Date: 20050107
  Serious: Yes (Other)
  Sender: FDA-Public Use
  Company Number: 2004038969

PATIENT
  Age: 27 Year
  Sex: Female

DRUGS (2)
  1. ZOLOFT [Suspect]
     Indication: PANIC ATTACK
     Dosage: ORAL
     Route: 048
     Dates: start: 20040201, end: 20040605
  2. EUGYNON (ETHINYLESTRADIOL, LEVONORGESTREL) [Suspect]
     Indication: CONTRACEPTION
     Dosage: ORAL
     Route: 048
     Dates: start: 20040101, end: 20040101

REACTIONS (12)
  - AGGRESSION [None]
  - CHEST PAIN [None]
  - DISEASE RECURRENCE [None]
  - DRUG INTERACTION [None]
  - ENERGY INCREASED [None]
  - HAEMORRHAGE [None]
  - HEART RATE INCREASED [None]
  - HORMONE LEVEL ABNORMAL [None]
  - PARANOIA [None]
  - SUICIDAL IDEATION [None]
  - VISION BLURRED [None]
  - WEIGHT FLUCTUATION [None]
